FAERS Safety Report 6689768-1 (Version None)
Quarter: 2010Q2

REPORT INFORMATION
  Report Type: 
  Country: None (occurrence: None)
  Receive Date: 20100421
  Receipt Date: 20100406
  Transmission Date: 20101027
  Serious: Yes (Other)
  Sender: FDA-Public Use
  Company Number: US-MYLANLABS-2010S1005688

PATIENT
  Age: 62 Year
  Sex: Female

DRUGS (4)
  1. TAMOXIFEN CITRATE [Suspect]
     Indication: BREAST CANCER STAGE I
     Route: 065
  2. ANASTROZOLE [Suspect]
     Indication: BREAST CANCER STAGE I
     Route: 065
  3. CISPLATIN [Suspect]
     Indication: LUNG SQUAMOUS CELL CARCINOMA STAGE UNSPECIFIED
     Route: 065
  4. GEMCITABINE HCL [Suspect]
     Indication: LUNG SQUAMOUS CELL CARCINOMA STAGE UNSPECIFIED
     Route: 065

REACTIONS (1)
  - MYELODYSPLASTIC SYNDROME [None]
